FAERS Safety Report 4733791-0 (Version None)
Quarter: 2005Q3

REPORT INFORMATION
  Report Type: 
  Country: None (occurrence: None)
  Receive Date: 20050729
  Receipt Date: 20050707
  Transmission Date: 20060218
  Serious: Yes (Hospitalization)
  Sender: FDA-Public Use
  Company Number: EWC050744873

PATIENT
  Age: 57 Year
  Sex: Female

DRUGS (3)
  1. FLUOXETINE [Suspect]
     Indication: DEPRESSION
     Dosage: 20 MG/1 DAY
     Dates: end: 20050606
  2. SPIRIVA [Concomitant]
  3. ATROVENT [Concomitant]

REACTIONS (6)
  - DIALYSIS [None]
  - DRUG LEVEL DECREASED [None]
  - HEPATIC FAILURE [None]
  - INTERNATIONAL NORMALISED RATIO INCREASED [None]
  - RENAL FAILURE [None]
  - RESPIRATORY FAILURE [None]
